FAERS Safety Report 4566030-4 (Version None)
Quarter: 2005Q1

REPORT INFORMATION
  Report Type: 
  Country: None (occurrence: None)
  Receive Date: 20050131
  Receipt Date: 20041202
  Transmission Date: 20050727
  Serious: Yes (Life-Threatening, Hospitalization, Disabling)
  Sender: FDA-Public Use
  Company Number: US-MERCK-0412USA00451

PATIENT
  Age: 56 Year
  Sex: Male
  Weight: 100 kg

DRUGS (15)
  1. PLAVIX [Concomitant]
     Route: 048
  2. NITROGLYCERIN [Concomitant]
     Route: 060
  3. NITROGLYCERIN [Concomitant]
     Route: 061
  4. ZESTRIL [Concomitant]
     Route: 048
  5. SPIRONOLACTONE [Concomitant]
     Route: 048
  6. DEMADEX [Concomitant]
     Route: 048
  7. ZYRTEC [Concomitant]
     Route: 048
  8. VIOXX [Suspect]
     Route: 048
     Dates: start: 20011101, end: 20030502
  9. TRICOR [Concomitant]
     Route: 065
  10. METOPROLOL [Concomitant]
     Route: 065
     Dates: end: 20030408
  11. METOPROLOL [Concomitant]
     Route: 048
     Dates: start: 20030408
  12. ASPIRIN [Concomitant]
     Route: 048
  13. KLOR-CON [Concomitant]
     Route: 048
  14. PRAVACHOL [Concomitant]
     Route: 065
  15. [THERAPY UNSPECIFIED] [Concomitant]
     Route: 065

REACTIONS (11)
  - ASTHENIA [None]
  - CARDIAC DISORDER [None]
  - CARDIAC MURMUR [None]
  - CHEST PAIN [None]
  - CONTUSION [None]
  - CORONARY ARTERY ATHEROSCLEROSIS [None]
  - DIZZINESS [None]
  - FATIGUE [None]
  - HYPOAESTHESIA [None]
  - ORTHOSTATIC HYPOTENSION [None]
  - SEXUAL DYSFUNCTION [None]
